FAERS Safety Report 5126885-1 (Version None)
Quarter: 2006Q4

REPORT INFORMATION
  Report Type: 
  Country: None (occurrence: None)
  Receive Date: 20061011
  Receipt Date: 20061011
  Transmission Date: 20070319
  Serious: Yes (Other)
  Sender: FDA-Public Use
  Company Number: None

PATIENT
  Age: 50 Year
  Sex: Female
  Weight: 83.9154 kg

DRUGS (1)
  1. AZITHROMYCIN [Suspect]
     Indication: PHARYNGOLARYNGEAL PAIN
     Dosage: 2 FIRST DAY, 1  NEXT 4 DAYS  5 DAYS PO
     Route: 048
     Dates: start: 20061006, end: 20061008

REACTIONS (7)
  - ABDOMINAL PAIN UPPER [None]
  - ASTHENIA [None]
  - FATIGUE [None]
  - HEADACHE [None]
  - MALAISE [None]
  - MYALGIA [None]
  - YELLOW SKIN [None]
